FAERS Safety Report 7928293-4 (Version None)
Quarter: 2011Q4

REPORT INFORMATION
  Report Type: 
  Country: None (occurrence: None)
  Receive Date: 20111118
  Receipt Date: 20111116
  Transmission Date: 20120403
  Serious: Yes (Other)
  Sender: FDA-Public Use
  Company Number: US-BAYER-2011-111329

PATIENT
  Age: 37 Year
  Sex: Female

DRUGS (1)
  1. MAGNEVIST [Suspect]
     Indication: NUCLEAR MAGNETIC RESONANCE IMAGING
     Dosage: 16 ML, ONCE
     Dates: start: 20111107, end: 20111107

REACTIONS (5)
  - RASH ERYTHEMATOUS [None]
  - DYSPNOEA [None]
  - URTICARIA [None]
  - THROAT TIGHTNESS [None]
  - PRURITUS [None]
